FAERS Safety Report 7318712-9 (Version None)
Quarter: 2011Q1

REPORT INFORMATION
  Report Type: 
  Country: None (occurrence: None)
  Receive Date: 20110228
  Receipt Date: 20101222
  Transmission Date: 20110831
  Serious: No
  Sender: FDA-Public Use
  Company Number: A0741660A

PATIENT
  Age: 44 Year
  Sex: Female

DRUGS (4)
  1. IMITREX [Suspect]
     Indication: MIGRAINE
     Dosage: 6MG AS REQUIRED
     Route: 058
     Dates: start: 19890101
  2. GSK AUTOINJECTOR [Suspect]
     Route: 058
  3. TOPAMAX [Concomitant]
  4. SAVELLA [Concomitant]

REACTIONS (10)
  - NASAL DISCOMFORT [None]
  - PARAESTHESIA [None]
  - DRUG INEFFECTIVE [None]
  - PAIN [None]
  - HEADACHE [None]
  - INJECTION SITE PAIN [None]
  - RENAL DISORDER [None]
  - BURNING SENSATION [None]
  - INJECTION SITE PRURITUS [None]
  - DYSURIA [None]
